FAERS Safety Report 22171064 (Version 2)
Quarter: 2024Q1

REPORT INFORMATION
  Report Type: Other
  Country: GB (occurrence: None)
  Receive Date: 20230404
  Receipt Date: 20240228
  Transmission Date: 20240409
  Serious: Yes (Other)
  Sender: FDA-Public Use
  Company Number: GB-ROCHE-3317312

PATIENT
  Age: 54 Year
  Sex: Female

DRUGS (9)
  1. OCRELIZUMAB [Suspect]
     Active Substance: OCRELIZUMAB
     Indication: Relapsing-remitting multiple sclerosis
     Route: 042
     Dates: start: 20190621
  2. OCRELIZUMAB [Suspect]
     Active Substance: OCRELIZUMAB
     Dosage: SHE RECEIVED SUBSEQUENT DOSE ON 23/MAY/2022, 21/NOV/2022, 16/NOV/2021,
     Route: 042
     Dates: start: 20191220, end: 20191220
  3. OCRELIZUMAB [Suspect]
     Active Substance: OCRELIZUMAB
     Route: 042
     Dates: start: 20190705, end: 20190705
  4. OCRELIZUMAB [Suspect]
     Active Substance: OCRELIZUMAB
     Route: 042
     Dates: start: 20201124, end: 20201124
  5. OCRELIZUMAB [Suspect]
     Active Substance: OCRELIZUMAB
     Dosage: 16/NOV/2021
     Route: 042
     Dates: start: 20210525, end: 20210525
  6. OCRELIZUMAB [Suspect]
     Active Substance: OCRELIZUMAB
     Route: 042
     Dates: start: 20230515, end: 20230515
  7. CHADOX1-S VACCINE [Concomitant]
     Route: 030
     Dates: start: 20210206, end: 20210206
  8. DESOGESTREL [Concomitant]
     Active Substance: DESOGESTREL
     Dosage: MEDICATION DOSE 75 UG??MEDICATION ONGOING YES?MEDICATION FREQUENCY QD
     Route: 048
     Dates: start: 20150911
  9. AMITRIPTYLINE [Concomitant]
     Active Substance: AMITRIPTYLINE
     Dosage: MEDICATION ONGOING YES?MEDICATION FREQUENCY QD
     Route: 048
     Dates: start: 20210312

REACTIONS (1)
  - Ophthalmic herpes zoster [Recovered/Resolved]

NARRATIVE: CASE EVENT DATE: 20210306
